FAERS Safety Report 24046271 (Version 1)
Quarter: 2024Q3

REPORT INFORMATION
  Report Type: Spontaneous
  Country: ID (occurrence: ID)
  Receive Date: 20240703
  Receipt Date: 20240703
  Transmission Date: 20241017
  Serious: Yes (Other)
  Sender: PFIZER
  Company Number: ID-PFIZER INC-PV202400084689

PATIENT
  Age: 28 Year
  Sex: Male

DRUGS (1)
  1. LINEZOLID [Suspect]
     Active Substance: LINEZOLID
     Indication: Tuberculosis
     Dosage: UNK

REACTIONS (6)
  - Blindness [Unknown]
  - Papilloedema [Unknown]
  - Optic neuropathy [Unknown]
  - Optic disc hyperaemia [Unknown]
  - Visual field defect [Unknown]
  - Off label use [Unknown]
